FAERS Safety Report 12264683 (Version 4)
Quarter: 2018Q2

REPORT INFORMATION
  Report Type: Spontaneous
  Country: JP (occurrence: JP)
  Receive Date: 20160413
  Receipt Date: 20180604
  Transmission Date: 20180711
  Serious: Yes (Hospitalization, Other)
  Sender: FDA-Public Use
  Company Number: JP-PFIZER INC-2016201070

PATIENT
  Sex: Female
  Weight: 46 kg

DRUGS (6)
  1. HALCION [Suspect]
     Active Substance: TRIAZOLAM
     Dosage: UNK
     Route: 048
  2. TRYPTANOL [Concomitant]
     Active Substance: AMITRIPTYLINE
     Dosage: UNK
     Route: 048
  3. JZOLOFT [Suspect]
     Active Substance: SERTRALINE HYDROCHLORIDE
     Indication: DEPRESSION
     Dosage: 50 MG, DAILY
     Route: 048
     Dates: start: 20150421
  4. DEPAS [Concomitant]
     Active Substance: ETIZOLAM
     Dosage: UNK
     Route: 048
  5. DEPAS [Concomitant]
     Active Substance: ETIZOLAM
     Dosage: INCREASED
     Route: 048
  6. DEPAS [Concomitant]
     Active Substance: ETIZOLAM
     Dosage: DECREASED ONCE
     Route: 048

REACTIONS (9)
  - Feeling abnormal [Recovering/Resolving]
  - Depression [Recovering/Resolving]
  - Suicidal ideation [Unknown]
  - Confusional state [Unknown]
  - Feeding disorder [Unknown]
  - Hypoaesthesia [Recovering/Resolving]
  - Insomnia [Not Recovered/Not Resolved]
  - Drug hypersensitivity [Unknown]
  - Condition aggravated [Unknown]

NARRATIVE: CASE EVENT DATE: 20150422
